FAERS Safety Report 8389173-6 (Version None)
Quarter: 2012Q2

REPORT INFORMATION
  Report Type: 
  Country: None (occurrence: None)
  Receive Date: 20120528
  Receipt Date: 20120523
  Transmission Date: 20120825
  Serious: Yes (Hospitalization, Other)
  Sender: FDA-Public Use
  Company Number: PHHY2011US52921

PATIENT
  Sex: Female

DRUGS (8)
  1. TOPAMAX [Concomitant]
     Indication: MIGRAINE
     Dosage: 100 MG, BID
     Route: 048
     Dates: start: 20100301
  2. LAXATIVES [Concomitant]
     Dosage: UNK UKN, UNK
  3. MULTI-VITAMINS [Concomitant]
     Dosage: UNK UKN, UNK
  4. CITRACAL [Concomitant]
     Dosage: UNK UKN, UNK
     Route: 048
  5. CITALOPRAM HYDROBROMIDE [Concomitant]
     Indication: DEPRESSION
     Dosage: 40 MG, QD
     Route: 048
     Dates: start: 20091001
  6. COLACE [Concomitant]
     Indication: CONSTIPATION
     Dosage: UNK UKN, PRN
     Route: 048
  7. ASPIRIN [Concomitant]
     Dosage: 81 MG, QD
     Route: 048
     Dates: start: 20090101
  8. GILENYA [Suspect]
     Indication: RELAPSING-REMITTING MULTIPLE SCLEROSIS
     Dosage: 0.5 MG, QD
     Route: 048
     Dates: start: 20110428

REACTIONS (10)
  - FATIGUE [None]
  - ELECTROENCEPHALOGRAM ABNORMAL [None]
  - GRAND MAL CONVULSION [None]
  - CONFUSIONAL STATE [None]
  - POSTICTAL STATE [None]
  - NEURODEGENERATIVE DISORDER [None]
  - ARTHRALGIA [None]
  - ASTHENIA [None]
  - LIMB DISCOMFORT [None]
  - DEPRESSION [None]
